FAERS Safety Report 11777331 (Version 1)
Quarter: 2015Q4

REPORT INFORMATION
  Report Type: Spontaneous
  Country: US (occurrence: US)
  Receive Date: 20151125
  Receipt Date: 20151125
  Transmission Date: 20160304
  Serious: No
  Sender: FDA-Public Use
  Company Number: US-BAYER-2015-472317

PATIENT
  Age: 58 Year
  Sex: Male
  Weight: 80.73 kg

DRUGS (2)
  1. VITAMIN C [Concomitant]
     Active Substance: ASCORBIC ACID
     Dosage: UNK
  2. CLARITIN [Suspect]
     Active Substance: LORATADINE
     Dosage: UNK
     Route: 048

REACTIONS (2)
  - Dry throat [Not Recovered/Not Resolved]
  - Oropharyngeal pain [Not Recovered/Not Resolved]
